FAERS Safety Report 22344525 (Version 3)
Quarter: 2025Q4

REPORT INFORMATION
  Report Type: Spontaneous
  Country: JP (occurrence: JP)
  Receive Date: 20230519
  Receipt Date: 20251125
  Transmission Date: 20260118
  Serious: Yes (Hospitalization, Other)
  Sender: GLAXOSMITHKLINE
  Company Number: JP-GLAXOSMITHKLINE-JP2023JPN069601

PATIENT
  Age: 71 Year
  Sex: Female
  Weight: 84 kg

DRUGS (11)
  1. VALACYCLOVIR HYDROCHLORIDE [Suspect]
     Active Substance: VALACYCLOVIR HYDROCHLORIDE
     Indication: Herpes zoster
     Dosage: 3000 MG, QD
  2. LOXOPROFEN SODIUM [Suspect]
     Active Substance: LOXOPROFEN SODIUM
     Indication: Neuralgia
     Dosage: 180 MG, QD
  3. HYDROCHLOROTHIAZIDE [Suspect]
     Active Substance: HYDROCHLOROTHIAZIDE
     Dosage: 1 MG, QD
  4. REBAMIPIDE [Concomitant]
     Active Substance: REBAMIPIDE
     Dosage: 300 MG, QD
  5. ESOMEPRAZOLE [Concomitant]
     Active Substance: ESOMEPRAZOLE
     Dosage: 10 MG, QD
  6. OLMESARTAN [Concomitant]
     Active Substance: OLMESARTAN
     Dosage: 40 MG, QD
  7. NIFEDIPINE [Concomitant]
     Active Substance: NIFEDIPINE
     Dosage: 40 MG, QD
  8. ATORVASTATIN [Concomitant]
     Active Substance: ATORVASTATIN
     Dosage: 10 MG, QD
  9. PREGABALIN [Concomitant]
     Active Substance: PREGABALIN
     Dosage: 150 MG, QD
  10. INSULIN DEGLUDEC [Concomitant]
     Active Substance: INSULIN DEGLUDEC
     Dosage: 14 UNITS, QD
  11. INSULIN ASPART [Concomitant]
     Active Substance: INSULIN ASPART
     Dosage: 26 UNITS, QD

REACTIONS (18)
  - Toxic encephalopathy [Unknown]
  - Dehydration [Unknown]
  - Acute kidney injury [Unknown]
  - Altered state of consciousness [Recovered/Resolved]
  - Azotaemia [Unknown]
  - Hallucination, visual [Recovered/Resolved]
  - Renal tubular disorder [Unknown]
  - Postrenal failure [Unknown]
  - Nephropathy toxic [Unknown]
  - Balance disorder [Unknown]
  - Dysarthria [Unknown]
  - Disorientation [Unknown]
  - Hypophagia [Unknown]
  - Oliguria [Unknown]
  - Dyslalia [Recovered/Resolved]
  - Metabolic acidosis [Unknown]
  - Insomnia [Unknown]
  - Confusional state [Unknown]
